FAERS Safety Report 21085332 (Version 13)
Quarter: 2024Q3

REPORT INFORMATION
  Report Type: Spontaneous
  Country: CA (occurrence: CA)
  Receive Date: 20220714
  Receipt Date: 20240905
  Transmission Date: 20241017
  Serious: Yes (Hospitalization, Other)
  Sender: CELLTRION
  Company Number: CA-CELLTRION INC.-2020CA027733

PATIENT

DRUGS (42)
  1. INFLECTRA [Suspect]
     Active Substance: INFLIXIMAB-DYYB
     Indication: Crohn^s disease
     Dosage: 10 MG/KG, 0, 2, 6 THEN EVERY 8 WEEKS(Q 0 WEEK DOSE)
     Route: 042
     Dates: start: 20200903, end: 20200903
  2. INFLECTRA [Suspect]
     Active Substance: INFLIXIMAB-DYYB
     Dosage: 10 MG/KG, 0, 2, 6 THEN EVERY 8 WEEKS(Q 2 WEEK DOSE)
     Route: 042
     Dates: start: 20200919, end: 20200919
  3. INFLECTRA [Suspect]
     Active Substance: INFLIXIMAB-DYYB
     Dosage: 10 MG/KG, 0, 2, 6 THEN EVERY 8 WEEKS(Q 6 WEEK DOSE)
     Route: 042
     Dates: start: 20201016, end: 20201016
  4. INFLECTRA [Suspect]
     Active Substance: INFLIXIMAB-DYYB
     Dosage: 10 MG/KG, 0, 2, 6 THEN EVERY 8 WEEKS
     Route: 042
     Dates: start: 20201016, end: 20201019
  5. INFLECTRA [Suspect]
     Active Substance: INFLIXIMAB-DYYB
     Dosage: 10 MG/KG, EVERY 8 WEEKS (10 MG/KG ROUND TO NEAREST 100 MG)
     Route: 042
     Dates: start: 20201209
  6. INFLECTRA [Suspect]
     Active Substance: INFLIXIMAB-DYYB
     Dosage: 10 MG/KG, EVERY 8 WEEKS (10 MG/KG ROUND TO NEAREST 100 MG)
     Route: 042
     Dates: start: 20210203
  7. INFLECTRA [Suspect]
     Active Substance: INFLIXIMAB-DYYB
     Dosage: 10 MG/KG, EVERY 8 WEEKS (10 MG/KG ROUND TO NEAREST 100 MG)
     Route: 042
     Dates: start: 20210330
  8. INFLECTRA [Suspect]
     Active Substance: INFLIXIMAB-DYYB
     Dosage: 10 MG/KG, EVERY 8 WEEKS (10 MG/KG ROUND TO NEAREST 100 MG)
     Route: 042
     Dates: start: 20210525
  9. INFLECTRA [Suspect]
     Active Substance: INFLIXIMAB-DYYB
     Dosage: 10 MG/KG, EVERY 8 WEEKS (10 MG/KG ROUND TO NEAREST 100 MG)
     Route: 042
     Dates: start: 20210920
  10. INFLECTRA [Suspect]
     Active Substance: INFLIXIMAB-DYYB
     Dosage: UNK
     Route: 042
     Dates: start: 20211111
  11. INFLECTRA [Suspect]
     Active Substance: INFLIXIMAB-DYYB
     Dosage: 10 MG/KG (ROUND TO NEAREST 100 MG) , EVERY 8 WEEKS
     Route: 042
     Dates: start: 20220106
  12. INFLECTRA [Suspect]
     Active Substance: INFLIXIMAB-DYYB
     Dosage: 10 MG/KG, (ROUND TO NEAREST 100 MG) , EVERY 8 WEEKS
     Route: 042
     Dates: start: 20220302
  13. INFLECTRA [Suspect]
     Active Substance: INFLIXIMAB-DYYB
     Dosage: 10 MG/KG, EVERY 8 WEEKS (10 MG/KG ROUND TO NEAREST 100 MG)
     Route: 042
     Dates: start: 20220511
  14. INFLECTRA [Suspect]
     Active Substance: INFLIXIMAB-DYYB
     Dosage: 10 MG/KG, EVERY 8 WEEKS (10 MG/KG ROUND TO NEAREST 100 MG)
     Route: 042
     Dates: start: 20220705
  15. INFLECTRA [Suspect]
     Active Substance: INFLIXIMAB-DYYB
     Dosage: 10 MG/KG, EVERY 8 WEEKS (10 MG/KG ROUND TO NEAREST 100 MG)
     Route: 042
     Dates: start: 20220705
  16. INFLECTRA [Suspect]
     Active Substance: INFLIXIMAB-DYYB
     Dosage: 10 MG/KG, EVERY 8 WEEKS (10 MG/KG ROUND TO NEAREST 100 MG)
     Route: 042
     Dates: start: 20220919
  17. INFLECTRA [Suspect]
     Active Substance: INFLIXIMAB-DYYB
     Dosage: 10 MG/KG, EVERY 8 WEEKS (10 MG/KG ROUND TO NEAREST 100 MG)
     Route: 042
     Dates: start: 20221116
  18. INFLECTRA [Suspect]
     Active Substance: INFLIXIMAB-DYYB
     Dosage: 10 MG/KG, EVERY 8 WEEKS (980 MG)
     Route: 042
     Dates: start: 20230126
  19. INFLECTRA [Suspect]
     Active Substance: INFLIXIMAB-DYYB
     Dosage: 10 MG/KG, EVERY 8 WEEKS
     Route: 042
     Dates: start: 20230719
  20. INFLECTRA [Suspect]
     Active Substance: INFLIXIMAB-DYYB
     Dosage: 980 MG (10 MG/KG), EVERY 8 WEEKS
     Route: 042
     Dates: start: 20230913
  21. INFLECTRA [Suspect]
     Active Substance: INFLIXIMAB-DYYB
     Dosage: 10 MG/KG EVERY 8 WEEK  (ROUND TO NEAREST 100 MG)
     Route: 042
     Dates: start: 20231109
  22. INFLECTRA [Suspect]
     Active Substance: INFLIXIMAB-DYYB
     Dosage: 10 MG/KG EVERY 8 WEEK  (ROUND TO NEAREST 100 MG), 990 MG, AFTER 9 WEEKS AND 6 DAYS
     Route: 042
     Dates: start: 20240117
  23. INFLECTRA [Suspect]
     Active Substance: INFLIXIMAB-DYYB
     Dosage: 10 MG/KG, EVERY 8 WEEK  (ROUND TO NEAREST 100 MG), 990 MG, AFTER 9 WEEKS AND 6 DAYS
     Route: 042
     Dates: start: 20240117
  24. INFLECTRA [Suspect]
     Active Substance: INFLIXIMAB-DYYB
     Dosage: 10 MG/KG, EVERY 8 WEEK  (ROUND TO NEAREST 100 MG), 990 MG, AFTER 9 WEEKS AND 6 DAYS
     Route: 042
     Dates: start: 20240117
  25. INFLECTRA [Suspect]
     Active Substance: INFLIXIMAB-DYYB
     Dosage: 10 MG/KG, EVERY 8 WEEK (ROUND TO NEAREST 100 MG, (970 MG AFTER 8 WEEKS)
     Route: 042
     Dates: start: 20240313
  26. INFLECTRA [Suspect]
     Active Substance: INFLIXIMAB-DYYB
     Dosage: 10 MG/KG, EVERY 8 WEEK (ROUND TO NEAREST 100 MG)
     Route: 042
     Dates: start: 20240508
  27. INFLECTRA [Suspect]
     Active Substance: INFLIXIMAB-DYYB
     Dosage: 10 MG/KG, EVERY 8 WEEK (ROUND TO NEAREST 100 MG)
     Route: 042
     Dates: start: 20240508
  28. INFLECTRA [Suspect]
     Active Substance: INFLIXIMAB-DYYB
     Dosage: 10 MG/KG, EVERY 8 WEEK (ROUND TO NEAREST 100 MG)
     Route: 042
     Dates: start: 20240703
  29. INFLECTRA [Suspect]
     Active Substance: INFLIXIMAB-DYYB
     Dosage: 920 MG, 8 WEEKS (10 MG/KG, EVERY 8 WEEK (ROUND TO NEAREST 100 MG))
     Route: 042
     Dates: start: 20240828
  30. DICYCLOMINE HYDROCHLORIDE [Concomitant]
     Active Substance: DICYCLOMINE HYDROCHLORIDE
     Dosage: 1 DF
  31. CALCIUM [Concomitant]
     Active Substance: CALCIUM
     Dosage: 1 DF
  32. CEPHALEXIN [Concomitant]
     Active Substance: CEPHALEXIN
     Dosage: 500 MG, 3X/DAY
     Route: 048
     Dates: start: 20220826
  33. CIPROFLOXACIN [Concomitant]
     Active Substance: CIPROFLOXACIN
     Dosage: UNK
     Dates: start: 20201004
  34. CORTISONE [Concomitant]
     Active Substance: CORTISONE
     Dosage: UNK
     Dates: start: 20210720
  35. FLAGYL [Concomitant]
     Active Substance: METRONIDAZOLE\METRONIDAZOLE HYDROCHLORIDE
     Dosage: UNK
     Dates: start: 20201004
  36. IMURAN [Concomitant]
     Active Substance: AZATHIOPRINE
     Dosage: 25 MG, 1X/DAY
     Route: 048
     Dates: start: 202008
  37. PANTOPRAZOLE SODIUM [Concomitant]
     Active Substance: PANTOPRAZOLE SODIUM
     Dosage: 1 DF
  38. PREDNISONE [Concomitant]
     Active Substance: PREDNISONE
     Dosage: 1 DF UNKNOWN; TAPER
  39. PREDNISONE [Concomitant]
     Active Substance: PREDNISONE
     Dosage: 1 DF, DOSAGE INFORMATION FOR PREDNISONE UNKNOWN; TAPER
  40. PREDNISONE [Concomitant]
     Active Substance: PREDNISONE
     Dosage: 1 DF DOSAGE INFORMATION FOR PREDNISONE UNKNOWN; TAPER
     Route: 065
  41. PROZAC [Concomitant]
     Active Substance: FLUOXETINE HYDROCHLORIDE
     Dosage: 1 DF
  42. TOPIRAMATE [Concomitant]
     Active Substance: TOPIRAMATE
     Dosage: 1 DF

REACTIONS (38)
  - Intestinal obstruction [Unknown]
  - Intestinal obstruction [Recovered/Resolved]
  - Mastitis [Recovered/Resolved]
  - Bronchitis [Not Recovered/Not Resolved]
  - Sinusitis [Not Recovered/Not Resolved]
  - Stoma site pruritus [Not Recovered/Not Resolved]
  - Rash [Not Recovered/Not Resolved]
  - Maternal exposure during pregnancy [Unknown]
  - Fatigue [Not Recovered/Not Resolved]
  - Tachycardia [Unknown]
  - Brain fog [Unknown]
  - Abscess [Unknown]
  - Skin laceration [Unknown]
  - Weight increased [Unknown]
  - Ulcer [Unknown]
  - Herpes zoster [Unknown]
  - Wound [Recovering/Resolving]
  - Erythema [Not Recovered/Not Resolved]
  - Pruritus [Unknown]
  - Psoriasis [Recovering/Resolving]
  - Migraine [Not Recovered/Not Resolved]
  - Cholelithiasis [Unknown]
  - Abdominal pain [Unknown]
  - Vomiting [Unknown]
  - COVID-19 [Recovered/Resolved]
  - Pyrexia [Not Recovered/Not Resolved]
  - Eczema [Recovering/Resolving]
  - Cough [Not Recovered/Not Resolved]
  - Chest pain [Not Recovered/Not Resolved]
  - Ear pain [Not Recovered/Not Resolved]
  - Nasal congestion [Not Recovered/Not Resolved]
  - Mouth ulceration [Not Recovered/Not Resolved]
  - Condition aggravated [Recovered/Resolved]
  - Drug level above therapeutic [Unknown]
  - Off label use [Unknown]
  - Intentional product use issue [Unknown]
  - Inappropriate schedule of product administration [Unknown]
  - Off label use [Unknown]

NARRATIVE: CASE EVENT DATE: 20200919
